FAERS Safety Report 4898732-4 (Version None)
Quarter: 2006Q1

REPORT INFORMATION
  Report Type: 
  Country: None (occurrence: None)
  Receive Date: 20060131
  Receipt Date: 20060119
  Transmission Date: 20060701
  Serious: Yes (Other)
  Sender: FDA-Public Use
  Company Number: 2006011005

PATIENT
  Sex: Female

DRUGS (4)
  1. BEXTRA [Suspect]
     Indication: ARTHRALGIA
     Dates: start: 20040801, end: 20040901
  2. COUMADIN [Concomitant]
  3. CARDIZEM [Concomitant]
  4. DIPYRIDAMOLE [Concomitant]

REACTIONS (3)
  - CARDIAC ANEURYSM [None]
  - DIZZINESS [None]
  - SYNCOPE [None]
